FAERS Safety Report 13006759 (Version 1)
Quarter: 2016Q4

REPORT INFORMATION
  Report Type: Spontaneous
  Country: GB (occurrence: GB)
  Receive Date: 20161207
  Receipt Date: 20161207
  Transmission Date: 20170207
  Serious: Yes (Death)
  Sender: FDA-Public Use
  Company Number: GB-RECKITT BENCKISER HEALTHCARE INT LIMITED-RB-93796-2016

PATIENT
  Age: 61 Year
  Sex: Female

DRUGS (2)
  1. UNSPECIFIED HYDROCORTISONE ACETATE [Suspect]
     Active Substance: HYDROCORTISONE ACETATE
     Indication: PRODUCT USED FOR UNKNOWN INDICATION
     Dosage: 5 MG, UNK
     Route: 065
  2. DESFERAL [Suspect]
     Active Substance: DEFEROXAMINE MESYLATE
     Indication: PRODUCT USED FOR UNKNOWN INDICATION
     Dosage: 2 G, TIW (THREE TIMES A WEEK)
     Route: 065

REACTIONS (1)
  - Death [Fatal]
